FAERS Safety Report 4536191-1 (Version None)
Quarter: 2004Q4

REPORT INFORMATION
  Report Type: 
  Country: None (occurrence: None)
  Receive Date: 20041223
  Receipt Date: 20041217
  Transmission Date: 20050328
  Serious: Yes (Death)
  Sender: FDA-Public Use
  Company Number: JPKYO-S-20040051

PATIENT
  Age: 71 Year
  Sex: Male

DRUGS (6)
  1. NAVELBINE [Suspect]
     Dosage: 32MG UNKNOWN
     Route: 042
     Dates: start: 20041021, end: 20041101
  2. GEMZAR [Suspect]
  3. MS CONTIN [Concomitant]
     Dates: start: 20041031, end: 20041121
  4. FAMOTIDINE [Concomitant]
     Dates: start: 20041027, end: 20041129
  5. PREDONINE [Concomitant]
     Dates: start: 20041027, end: 20041129
  6. HARNAL [Concomitant]
     Dates: start: 20041108, end: 20041125

REACTIONS (6)
  - C-REACTIVE PROTEIN INCREASED [None]
  - INTERSTITIAL LUNG DISEASE [None]
  - LYMPHOMA [None]
  - PYREXIA [None]
  - RESPIRATORY DISORDER [None]
  - THROMBOSIS [None]
